FAERS Safety Report 4836446-7 (Version None)
Quarter: 2005Q4

REPORT INFORMATION
  Report Type: 
  Country: None (occurrence: None)
  Receive Date: 20051118
  Receipt Date: 20051108
  Transmission Date: 20060501
  Serious: Yes (Hospitalization, Other)
  Sender: FDA-Public Use
  Company Number: 2005144215

PATIENT
  Age: 60 Year
  Sex: Male

DRUGS (5)
  1. LYRICA [Suspect]
     Indication: NEURALGIA
     Dosage: 150 MG (75 MG, 2 IN 1 D), ORAL
     Route: 048
     Dates: end: 20050601
  2. GLICLAZIDE (GLICLAZIDE) [Concomitant]
  3. METFORMIN HCL [Concomitant]
  4. ASCAL (ACETYLSALICYLIC CALCIUM) [Concomitant]
  5. PARACETAMOL (PARACETAMOL) [Concomitant]

REACTIONS (13)
  - BLOOD GLUCOSE INCREASED [None]
  - BODY TEMPERATURE INCREASED [None]
  - BREATH SOUNDS ABNORMAL [None]
  - CEREBRAL INFARCTION [None]
  - CONTRAINDICATION TO MEDICAL TREATMENT [None]
  - FIBRIN D DIMER INCREASED [None]
  - HEADACHE [None]
  - HEART RATE INCREASED [None]
  - HYPERTENSION [None]
  - HYPERTHERMIA [None]
  - SENSORY DISTURBANCE [None]
  - SPEECH DISORDER [None]
  - THROMBOCYTOPENIA [None]
